FAERS Safety Report 6372975-5 (Version None)
Quarter: 2009Q3

REPORT INFORMATION
  Report Type: 
  Country: None (occurrence: None)
  Receive Date: 20090924
  Receipt Date: 20081211
  Transmission Date: 20100115
  Serious: Yes (Other)
  Sender: FDA-Public Use
  Company Number: US-ASTRAZENECA-2008UW27751

PATIENT
  Age: 80 Year
  Sex: Female
  Weight: 59 kg

DRUGS (8)
  1. SEROQUEL [Suspect]
     Indication: ANXIETY
     Route: 048
     Dates: start: 20070101
  2. AMBIEN [Concomitant]
  3. REMERON [Concomitant]
  4. OMEPRAZOLE [Concomitant]
  5. ASPIRIN [Concomitant]
  6. KLONOPIN [Concomitant]
  7. BENTYL [Concomitant]
  8. CALCIUM [Concomitant]

REACTIONS (2)
  - SOMNOLENCE [None]
  - SUICIDAL IDEATION [None]
